FAERS Safety Report 9362902 (Version 2)
Quarter: 2013Q3

REPORT INFORMATION
  Report Type: Report from Study
  Country: JP (occurrence: JP)
  Receive Date: 20130624
  Receipt Date: 20130725
  Transmission Date: 20140515
  Serious: Yes (Other)
  Sender: FDA-Public Use
  Company Number: JP-ROCHE-1239227

PATIENT
  Age: 65 Year
  Sex: Female
  Weight: 46 kg

DRUGS (10)
  1. METHOXY POLYETHYLENE GLYCOL-EPOETIN BETA [Suspect]
     Indication: NEPHROGENIC ANAEMIA
     Route: 042
     Dates: start: 20120605, end: 20120605
  2. METHOXY POLYETHYLENE GLYCOL-EPOETIN BETA [Suspect]
     Indication: NEPHROGENIC ANAEMIA
     Route: 042
     Dates: start: 20120703, end: 20120703
  3. METHOXY POLYETHYLENE GLYCOL-EPOETIN BETA [Suspect]
     Indication: NEPHROGENIC ANAEMIA
     Route: 042
     Dates: start: 20121206, end: 20130205
  4. CALTAN [Concomitant]
     Route: 048
     Dates: end: 20130206
  5. CALTAN [Concomitant]
     Route: 048
     Dates: start: 20130207
  6. BAYASPIRIN [Concomitant]
     Route: 048
  7. PANALDINE [Concomitant]
     Route: 048
  8. ONEALFA [Concomitant]
     Dosage: DIALYSIS DAY
     Route: 048
  9. PHOSBLOCK [Concomitant]
     Route: 048
     Dates: end: 20121024
  10. PHOSBLOCK [Concomitant]
     Route: 048
     Dates: start: 20121025

REACTIONS (1)
  - Cerebral infarction [Recovered/Resolved]
